FAERS Safety Report 22375065 (Version 1)
Quarter: 2023Q2

REPORT INFORMATION
  Report Type: Spontaneous
  Country: US (occurrence: US)
  Receive Date: 20230527
  Receipt Date: 20230527
  Transmission Date: 20230722
  Serious: Yes (Hospitalization)
  Sender: FDA-Public Use
  Company Number: US-NOVITIUMPHARMA-2023USNVP00768

PATIENT
  Age: 43 Year
  Sex: Male

DRUGS (18)
  1. DEXAMETHASONE [Suspect]
     Active Substance: DEXAMETHASONE
     Indication: Hypotension
  2. DEXAMETHASONE [Suspect]
     Active Substance: DEXAMETHASONE
     Indication: Asthma
  3. DEXAMETHASONE [Suspect]
     Active Substance: DEXAMETHASONE
     Indication: Myoclonus
  4. NOREPINEPHRINE [Concomitant]
     Active Substance: NOREPINEPHRINE
     Indication: Hypotension
  5. NOREPINEPHRINE [Concomitant]
     Active Substance: NOREPINEPHRINE
     Indication: Asthma
  6. NOREPINEPHRINE [Concomitant]
     Active Substance: NOREPINEPHRINE
     Indication: Myoclonus
  7. ALBUTEROL [Concomitant]
     Active Substance: ALBUTEROL
     Indication: Hypotension
  8. ALBUTEROL [Concomitant]
     Active Substance: ALBUTEROL
     Indication: Asthma
  9. ALBUTEROL [Concomitant]
     Active Substance: ALBUTEROL
     Indication: Myoclonus
  10. Ipratropium-bromide [Concomitant]
     Indication: Hypotension
  11. Ipratropium-bromide [Concomitant]
     Indication: Asthma
  12. Ipratropium-bromide [Concomitant]
     Indication: Myoclonus
  13. MAGNESIUM [Concomitant]
     Active Substance: MAGNESIUM
     Indication: Hypotension
  14. MAGNESIUM [Concomitant]
     Active Substance: MAGNESIUM
     Indication: Asthma
  15. MAGNESIUM [Concomitant]
     Active Substance: MAGNESIUM
     Indication: Myoclonus
  16. LEVETIRACETAM [Concomitant]
     Active Substance: LEVETIRACETAM
     Indication: Hypotension
  17. LEVETIRACETAM [Concomitant]
     Active Substance: LEVETIRACETAM
     Indication: Asthma
  18. LEVETIRACETAM [Concomitant]
     Active Substance: LEVETIRACETAM
     Indication: Myoclonus

REACTIONS (1)
  - Drug ineffective [Unknown]
